FAERS Safety Report 11115906 (Version 1)
Quarter: 2015Q2

REPORT INFORMATION
  Report Type: Spontaneous
  Country: AU (occurrence: AU)
  Receive Date: 20150515
  Receipt Date: 20150515
  Transmission Date: 20150821
  Serious: Yes (Hospitalization, Other)
  Sender: FDA-Public Use
  Company Number: AU-ABBVIE-15P-008-1388612-00

PATIENT
  Age: 48 Year
  Sex: Female
  Weight: 107 kg

DRUGS (6)
  1. SEVORANE [Suspect]
     Active Substance: SEVOFLURANE
     Indication: PRODUCT USED FOR UNKNOWN INDICATION
     Route: 055
     Dates: start: 20131017, end: 20131017
  2. OXYCODONE HYDROCHLORIDE. [Concomitant]
     Active Substance: OXYCODONE HYDROCHLORIDE
     Indication: PRODUCT USED FOR UNKNOWN INDICATION
     Route: 065
  3. DESFLURANE. [Suspect]
     Active Substance: DESFLURANE
     Indication: PRODUCT USED FOR UNKNOWN INDICATION
     Route: 065
     Dates: start: 20131017, end: 20131017
  4. DOCUSATE SENNOSIDE [Concomitant]
     Indication: PRODUCT USED FOR UNKNOWN INDICATION
     Route: 065
  5. PARACETAMOL [Concomitant]
     Active Substance: ACETAMINOPHEN
     Indication: PRODUCT USED FOR UNKNOWN INDICATION
     Route: 065
  6. NIMODIPINE. [Concomitant]
     Active Substance: NIMODIPINE
     Indication: PRODUCT USED FOR UNKNOWN INDICATION
     Route: 065

REACTIONS (4)
  - Pulseless electrical activity [Recovered/Resolved]
  - Hyperthermia malignant [Recovered/Resolved]
  - End-tidal CO2 increased [Recovered/Resolved]
  - Pyrexia [Recovered/Resolved]

NARRATIVE: CASE EVENT DATE: 20131017
